FAERS Safety Report 22065561 (Version 1)
Quarter: 2023Q1

REPORT INFORMATION
  Report Type: Spontaneous
  Country: US (occurrence: None)
  Receive Date: 20230305
  Receipt Date: 20230305
  Transmission Date: 20230418
  Serious: No
  Sender: FDA-Public Use
  Company Number: None

PATIENT
  Age: 47 Year
  Sex: Female

DRUGS (1)
  1. ESTRADIOL [Suspect]
     Active Substance: ESTRADIOL
     Indication: Artificial menopause
     Dosage: OTHER QUANTITY : 1 PATCH(ES);?OTHER FREQUENCY : TWICE WEEKLY;?
     Route: 062
     Dates: start: 20230303, end: 20230305

REACTIONS (5)
  - Hot flush [None]
  - Anxiety [None]
  - Headache [None]
  - Product substitution issue [None]
  - Menopausal symptoms [None]

NARRATIVE: CASE EVENT DATE: 20230305
